FAERS Safety Report 23378369 (Version 1)
Quarter: 2024Q1

REPORT INFORMATION
  Report Type: Spontaneous
  Country: ES (occurrence: ES)
  Receive Date: 20240108
  Receipt Date: 20240108
  Transmission Date: 20240410
  Serious: Yes (Life-Threatening, Hospitalization, Other)
  Sender: FDA-Public Use
  Company Number: None

PATIENT
  Age: 75 Year
  Sex: Male
  Weight: 81.9 kg

DRUGS (1)
  1. LAMOTRIGINE [Suspect]
     Active Substance: LAMOTRIGINE
     Indication: Product used for unknown indication
     Dosage: 4400 MILLIGRAM, 1 TOTAL, 44 TABLETS
     Route: 048
     Dates: start: 20230910, end: 20230910

REACTIONS (4)
  - Coma [Recovered/Resolved]
  - Bundle branch block right [Recovered/Resolved]
  - Thrombocytopenia [Recovered/Resolved]
  - Suicide attempt [Unknown]

NARRATIVE: CASE EVENT DATE: 20230910
